FAERS Safety Report 14867827 (Version 1)
Quarter: 2018Q2

REPORT INFORMATION
  Report Type: Report from Study
  Country: CA (occurrence: CA)
  Receive Date: 20180509
  Receipt Date: 20180509
  Transmission Date: 20180711
  Serious: Yes (Life-Threatening, Hospitalization, Other)
  Sender: FDA-Public Use
  Company Number: CA-AMGEN-CANSL2018020441

PATIENT
  Age: 70 Year
  Sex: Female

DRUGS (5)
  1. TIAZAC [Concomitant]
     Active Substance: DILTIAZEM HYDROCHLORIDE
     Indication: HYPERTENSION
     Dosage: UNK
  2. REPATHA [Suspect]
     Active Substance: EVOLOCUMAB
     Indication: TYPE IIA HYPERLIPIDAEMIA
     Dosage: 140 MG/ML, UNK
     Route: 065
     Dates: start: 20170510
  3. ATENOLOL. [Concomitant]
     Active Substance: ATENOLOL
     Indication: HYPERTENSION
     Dosage: UNK
  4. IRBESARTAN. [Concomitant]
     Active Substance: IRBESARTAN
     Indication: HYPERTENSION
     Dosage: UNK
  5. VITAMIN D3 [Concomitant]
     Active Substance: CHOLECALCIFEROL

REACTIONS (16)
  - Malaise [Unknown]
  - Confusional state [Unknown]
  - Fatigue [Unknown]
  - Dyspnoea [Unknown]
  - Dysphonia [Unknown]
  - Hypoaesthesia [Unknown]
  - Neck pain [Unknown]
  - Ventricular extrasystoles [Recovered/Resolved]
  - Blood pressure abnormal [Not Recovered/Not Resolved]
  - Back pain [Unknown]
  - Unresponsive to stimuli [Unknown]
  - Musculoskeletal disorder [Unknown]
  - Loss of consciousness [Unknown]
  - Hypoaesthesia oral [Unknown]
  - Dizziness [Unknown]
  - Hyperhidrosis [Unknown]

NARRATIVE: CASE EVENT DATE: 201801
